FAERS Safety Report 23217316 (Version 1)
Quarter: 2023Q4

REPORT INFORMATION
  Report Type: Spontaneous
  Country: US (occurrence: None)
  Receive Date: 20231121
  Receipt Date: 20231121
  Transmission Date: 20240110
  Serious: Yes (Other)
  Sender: FDA-Public Use
  Company Number: None

PATIENT
  Age: 72 Year
  Sex: Female

DRUGS (2)
  1. RADICAVA [Suspect]
     Active Substance: EDARAVONE
     Indication: Amyotrophic lateral sclerosis
     Dosage: 105 MG DAILY ORAL
     Route: 048
     Dates: start: 20231115, end: 20231119
  2. Riluzole 50 mg [Concomitant]
     Dates: start: 20231103, end: 20231119

REACTIONS (7)
  - Rash erythematous [None]
  - Rash pruritic [None]
  - Rash [None]
  - Swollen tongue [None]
  - Dysphagia [None]
  - Urticaria [None]
  - Therapy cessation [None]

NARRATIVE: CASE EVENT DATE: 20231118
